FAERS Safety Report 7631452-1 (Version None)
Quarter: 2011Q3

REPORT INFORMATION
  Report Type: 
  Country: None (occurrence: None)
  Receive Date: 20110725
  Receipt Date: 20110711
  Transmission Date: 20111222
  Serious: Yes (Other)
  Sender: FDA-Public Use
  Company Number: CA-ELI_LILLY_AND_COMPANY-CA201107002697

PATIENT
  Sex: Female

DRUGS (16)
  1. ZYPREXA [Suspect]
     Indication: PSYCHOTIC DISORDER
     Dosage: 7.5 MG, QD
  2. DIOVAN [Concomitant]
  3. AVAPRO [Concomitant]
     Indication: BLOOD PRESSURE INCREASED
  4. ARIMIDEX [Concomitant]
  5. MEGESTROL ACETATE [Concomitant]
  6. ZYPREXA [Suspect]
     Dosage: 5 MG, QD
  7. EFFEXOR [Concomitant]
  8. KEMADRIN [Concomitant]
  9. PRILOSEC [Concomitant]
  10. PREDNISONE [Concomitant]
  11. TEGRETOL [Concomitant]
  12. ZOMETA [Concomitant]
  13. VIOXX [Concomitant]
  14. ZYPREXA [Suspect]
     Dosage: 10 MG, QD
  15. CLONAZEPAM [Concomitant]
  16. TAMOXIFEN CITRATE [Concomitant]

REACTIONS (17)
  - AORTIC VALVE INCOMPETENCE [None]
  - HEPATIC STEATOSIS [None]
  - ASPARTATE AMINOTRANSFERASE INCREASED [None]
  - LOSS OF CONSCIOUSNESS [None]
  - RECTAL HAEMORRHAGE [None]
  - HAEMANGIOMA OF LIVER [None]
  - PERICARDIAL EFFUSION [None]
  - PITUITARY-DEPENDENT CUSHING'S SYNDROME [None]
  - DIABETES MELLITUS [None]
  - WEIGHT INCREASED [None]
  - PANCREATITIS [None]
  - MITRAL VALVE INCOMPETENCE [None]
  - BRONCHITIS VIRAL [None]
  - ATELECTASIS [None]
  - DYSLIPIDAEMIA [None]
  - ALANINE AMINOTRANSFERASE INCREASED [None]
  - ANORECTAL DISCOMFORT [None]
